FAERS Safety Report 13433145 (Version 1)
Quarter: 2017Q2

REPORT INFORMATION
  Report Type: Report from Study
  Country: US (occurrence: US)
  Receive Date: 20170412
  Receipt Date: 20170412
  Transmission Date: 20170830
  Serious: Yes (Other)
  Sender: FDA-Public Use
  Company Number: US-MYLANLABS-2017M1022082

PATIENT

DRUGS (6)
  1. TASQUINIMOD [Suspect]
     Active Substance: TASQUINIMOD
     Indication: HORMONE-REFRACTORY PROSTATE CANCER
     Route: 048
  2. TASQUINIMOD [Suspect]
     Active Substance: TASQUINIMOD
     Route: 048
  3. PEGFILGRASTIM [Suspect]
     Active Substance: PEGFILGRASTIM
     Indication: PRODUCT USED FOR UNKNOWN INDICATION
     Dosage: STARTING AT CYCLE 1 OF DAY 2
     Route: 065
  4. TASQUINIMOD [Suspect]
     Active Substance: TASQUINIMOD
     Route: 048
  5. PREDNISONE. [Suspect]
     Active Substance: PREDNISONE
     Indication: HORMONE-REFRACTORY PROSTATE CANCER
     Dosage: 10MG DAILY
     Route: 048
  6. CABAZITAXEL [Suspect]
     Active Substance: CABAZITAXEL
     Indication: HORMONE-REFRACTORY PROSTATE CANCER
     Dosage: 25 MG/M2 EVERY 3 WEEKS
     Route: 065

REACTIONS (10)
  - Urinary tract infection [Unknown]
  - Sepsis [Unknown]
  - Febrile neutropenia [Unknown]
  - Toxicity to various agents [None]
  - Hypotension [Unknown]
  - Atrial fibrillation [Unknown]
  - Gastric ulcer [Unknown]
  - Aspartate aminotransferase increased [Unknown]
  - Gastritis [Unknown]
  - Rash pustular [Unknown]
